FAERS Safety Report 12749722 (Version 2)
Quarter: 2017Q3

REPORT INFORMATION
  Report Type: Spontaneous
  Country: US (occurrence: US)
  Receive Date: 20160915
  Receipt Date: 20170914
  Transmission Date: 20171127
  Serious: No
  Sender: FDA-Public Use
  Company Number: US-ASTELLAS-2016US017174

PATIENT
  Age: 87 Year
  Sex: Male

DRUGS (3)
  1. XTANDI [Suspect]
     Active Substance: ENZALUTAMIDE
     Indication: PROSTATE CANCER
     Route: 048
  2. XTANDI [Suspect]
     Active Substance: ENZALUTAMIDE
     Route: 048
  3. XTANDI [Suspect]
     Active Substance: ENZALUTAMIDE
     Route: 048
     Dates: start: 2015

REACTIONS (8)
  - Anosmia [Not Recovered/Not Resolved]
  - Fatigue [Unknown]
  - Prostatic specific antigen increased [Not Recovered/Not Resolved]
  - Treatment noncompliance [Unknown]
  - Somnolence [Not Recovered/Not Resolved]
  - Ageusia [Not Recovered/Not Resolved]
  - Scan abnormal [Not Recovered/Not Resolved]
  - Decreased appetite [Not Recovered/Not Resolved]

NARRATIVE: CASE EVENT DATE: 2015
